FAERS Safety Report 13181966 (Version 1)
Quarter: 2017Q1

REPORT INFORMATION
  Report Type: Spontaneous
  Country: US (occurrence: US)
  Receive Date: 20170202
  Receipt Date: 20170202
  Transmission Date: 20170428
  Serious: No
  Sender: FDA-Public Use
  Company Number: US-IMPAX LABORATORIES, INC-2016-IPXL-02454

PATIENT
  Age: 71 Year
  Sex: Male

DRUGS (4)
  1. RYTARY [Suspect]
     Active Substance: CARBIDOPA\LEVODOPA
     Indication: PRODUCT USED FOR UNKNOWN INDICATION
     Dosage: 48.75/195 MG, 2 CAPSULES, (AT 8 O^ CLOCK IN MORNING + 3 O^CLOCK IN AFTERNOON)
     Route: 048
     Dates: start: 20161209, end: 20161209
  2. PRAMIPEXOLE. [Concomitant]
     Active Substance: PRAMIPEXOLE
     Indication: PRODUCT USED FOR UNKNOWN INDICATION
     Dosage: 0.25 MG, 2 ? TABLETS IN MORNING, 2 TABLETS AT 2 O^CLOCK + 2 TABLETS AT 7 O^CLOCK
     Route: 065
  3. AMANTADINE [Concomitant]
     Active Substance: AMANTADINE
     Indication: PARKINSON^S DISEASE
     Dosage: 100 MG, ? TABLET, FOUR TIMES A DAY
     Route: 065
  4. PARCOPA [Concomitant]
     Active Substance: CARBIDOPA\LEVODOPA
     Indication: PARKINSON^S DISEASE
     Dosage: 10/100 MG, 1 TABLET IN MORNING, 1 AT NIGHT. HALF TABLET (DIVIDED INTO FOUR SOMETIMES DURING THE DAY)
     Route: 065

REACTIONS (2)
  - Drug ineffective [Unknown]
  - Accidental underdose [Unknown]

NARRATIVE: CASE EVENT DATE: 20161209
